FAERS Safety Report 8236953-3 (Version None)
Quarter: 2012Q1

REPORT INFORMATION
  Report Type: 
  Country: None (occurrence: None)
  Receive Date: 20120327
  Receipt Date: 20120316
  Transmission Date: 20120608
  Serious: Yes (Hospitalization)
  Sender: FDA-Public Use
  Company Number: PHFR2011GB007015

PATIENT
  Sex: Female

DRUGS (1)
  1. CLOZARIL [Suspect]
     Indication: SCHIZOPHRENIA
     Route: 048
     Dates: start: 20040217

REACTIONS (5)
  - KIDNEY INFECTION [None]
  - RENAL IMPAIRMENT [None]
  - CONFUSIONAL STATE [None]
  - CIRCULATORY COLLAPSE [None]
  - DEHYDRATION [None]
